FAERS Safety Report 16929787 (Version 1)
Quarter: 2019Q4

REPORT INFORMATION
  Report Type: Spontaneous
  Country: CA (occurrence: CA)
  Receive Date: 20191017
  Receipt Date: 20191017
  Transmission Date: 20200122
  Serious: Yes (Life-Threatening, Hospitalization)
  Sender: FDA-Public Use
  Company Number: CA-PFIZER INC-2019447188

PATIENT
  Age: 61 Year
  Sex: Female
  Weight: 106 kg

DRUGS (7)
  1. ACETAMINOPHEN. [Concomitant]
     Active Substance: ACETAMINOPHEN
     Dosage: UNK
  2. RAMIPRIL. [Concomitant]
     Active Substance: RAMIPRIL
     Dosage: UNK
  3. ALLOPURINOL. [Concomitant]
     Active Substance: ALLOPURINOL
     Dosage: UNK
  4. A.S.A. [Concomitant]
     Dosage: UNK
  5. VANCOMYCIN HCL [Suspect]
     Active Substance: VANCOMYCIN HYDROCHLORIDE
     Indication: DEVICE RELATED INFECTION
     Dosage: 1000.0 MG, 2X/DAY
     Route: 042
  6. HYDROCHLOROTHIAZIDE. [Concomitant]
     Active Substance: HYDROCHLOROTHIAZIDE
     Dosage: UNK
  7. PEG 3350 [Concomitant]
     Active Substance: POLYETHYLENE GLYCOL 3350
     Dosage: UNK

REACTIONS (12)
  - Red cell distribution width abnormal [Recovering/Resolving]
  - White blood cell count abnormal [Recovering/Resolving]
  - Wound drainage [Recovering/Resolving]
  - Haemoglobin abnormal [Recovering/Resolving]
  - Platelet count abnormal [Recovering/Resolving]
  - Malaise [Recovering/Resolving]
  - Prothrombin time abnormal [Recovering/Resolving]
  - Blister [Recovering/Resolving]
  - Rash macular [Recovering/Resolving]
  - Red blood cell count abnormal [Recovering/Resolving]
  - Haematocrit abnormal [Recovering/Resolving]
  - Erythema multiforme [Recovering/Resolving]
